FAERS Safety Report 17474461 (Version 1)
Quarter: 2020Q1

REPORT INFORMATION
  Report Type: Spontaneous
  Country: US (occurrence: US)
  Receive Date: 20200218
  Receipt Date: 20200218
  Transmission Date: 20200409
  Serious: No
  Sender: FDA-Public Use
  Company Number: None

PATIENT
  Age: 83 Year
  Sex: Female
  Weight: 62 kg

DRUGS (1)
  1. ZOMETA [Suspect]
     Active Substance: ZOLEDRONIC ACID
     Dates: end: 20120613

REACTIONS (3)
  - Osteonecrosis of jaw [None]
  - Diffuse large B-cell lymphoma [None]
  - Breast cancer recurrent [None]

NARRATIVE: CASE EVENT DATE: 20191202
